FAERS Safety Report 5335782-8 (Version None)
Quarter: 2007Q2

REPORT INFORMATION
  Report Type: 
  Country: None (occurrence: None)
  Receive Date: 20070322
  Receipt Date: 20070201
  Transmission Date: 20071010
  Serious: No
  Sender: FDA-Public Use
  Company Number: 2007US000298

PATIENT
  Age: 73 Year
  Sex: Male

DRUGS (7)
  1. VESICARE [Suspect]
     Indication: MICTURITION URGENCY
     Dosage: 5 MG, ORAL
     Route: 048
     Dates: start: 20070125
  2. LOTREL [Concomitant]
  3. ZOCOR [Concomitant]
  4. NEXIUM [Concomitant]
  5. CLARITIN [Concomitant]
  6. CLARITIN-D [Concomitant]
  7. NASONEX [Concomitant]

REACTIONS (2)
  - DRY MOUTH [None]
  - URINE OUTPUT DECREASED [None]
